FAERS Safety Report 10695344 (Version 1)
Quarter: 2015Q1

REPORT INFORMATION
  Report Type: Spontaneous
  Country: US (occurrence: US)
  Receive Date: 20150107
  Receipt Date: 20150107
  Transmission Date: 20150721
  Serious: Yes (Death, Other)
  Sender: FDA-Public Use
  Company Number: US-JNJFOC-20141218648

PATIENT
  Age: 80 Year
  Sex: Male

DRUGS (1)
  1. DURAGESIC [Suspect]
     Active Substance: FENTANYL
     Indication: HERPES ZOSTER
     Route: 062

REACTIONS (2)
  - Pneumonia [Fatal]
  - Loss of consciousness [Recovered/Resolved]
